FAERS Safety Report 8898470 (Version 1)
Quarter: 2012Q4

REPORT INFORMATION
  Report Type: 
  Country: US (occurrence: US)
  Receive Date: 20121108
  Receipt Date: 20121108
  Transmission Date: 20130627
  Serious: No
  Sender: FDA-Public Use
  Company Number: US-AMGEN-USASP2012030125

PATIENT
  Age: 49 Year
  Sex: Female

DRUGS (17)
  1. ENBREL [Suspect]
     Indication: RHEUMATOID ARTHRITIS
     Dosage: 50 mg, qwk
     Route: 058
  2. NEURONTIN [Concomitant]
     Dosage: 300 mg, UNK
     Route: 048
  3. ABILIFY [Concomitant]
     Dosage: 25 mg, UNK
     Route: 048
  4. ZOLOFT [Concomitant]
     Dosage: 50 mg, UNK
     Route: 048
  5. PLAVIX [Concomitant]
     Dosage: 75 mg, UNK
     Route: 048
  6. TOPAMAX [Concomitant]
     Dosage: 50 mg, UNK
     Route: 048
  7. XYZAL [Concomitant]
     Dosage: 5 mg, UNK
     Route: 048
  8. MULTIVITAMIN                       /00097801/ [Concomitant]
     Dosage: UNK
     Route: 048
  9. CALCIUM +D                         /00188401/ [Concomitant]
     Dosage: UNK
     Route: 048
  10. RELAFEN [Concomitant]
     Dosage: 500 mg, UNK
     Route: 048
  11. CYMBALTA [Concomitant]
     Dosage: 20 mg, UNK
     Route: 048
  12. ALLEGRA D [Concomitant]
     Dosage: UNK
     Route: 048
  13. ADOXA                              /00055701/ [Concomitant]
     Dosage: 150 mg, UNK
     Route: 048
  14. YASMIN 28 [Concomitant]
     Route: 048
  15. SONATA                             /00061001/ [Concomitant]
     Dosage: 10 mg, UNK
     Route: 048
  16. PREVACID [Concomitant]
     Dosage: 15 mg, UNK
     Route: 048
  17. FLEXERIL                           /00428402/ [Concomitant]
     Dosage: 10 mg, UNK
     Route: 048

REACTIONS (1)
  - Sinusitis [Unknown]
